FAERS Safety Report 9304125 (Version 1)
Quarter: 2013Q2

REPORT INFORMATION
  Report Type: Spontaneous
  Country: US (occurrence: US)
  Receive Date: 20130522
  Receipt Date: 20130522
  Transmission Date: 20140414
  Serious: No
  Sender: FDA-Public Use
  Company Number: US-COVIDIEN/TYCO HEALTHCARE/MALLINCKRODT-T201301547

PATIENT
  Sex: Female

DRUGS (7)
  1. GABLOFEN [Suspect]
     Indication: MUSCLE SPASMS
     Dosage: 275 MCG/DAY
     Route: 037
     Dates: start: 201302
  2. GABLOFEN [Suspect]
     Dosage: 100 MCG/DAY
     Route: 037
     Dates: start: 2011, end: 201302
  3. GABLOFEN [Suspect]
     Dosage: BOLUS
     Dates: start: 201303, end: 201303
  4. FLUOXETINE [Concomitant]
     Indication: ANTIDEPRESSANT THERAPY
     Dosage: UNK
  5. OXYBUTYNIN [Concomitant]
     Indication: BLADDER SPASM
     Dosage: UNK
  6. METOPROLOL [Concomitant]
     Indication: HYPERTENSION
     Dosage: UNK
  7. MULTIVITAMIN                       /00097801/ [Concomitant]
     Indication: SUPPLEMENTATION THERAPY
     Dosage: UNK

REACTIONS (3)
  - Activities of daily living impaired [Unknown]
  - Musculoskeletal stiffness [Not Recovered/Not Resolved]
  - Drug ineffective [Unknown]
